FAERS Safety Report 8796477 (Version 2)
Quarter: 2012Q4

REPORT INFORMATION
  Report Type: 
  Country: ES (occurrence: ES)
  Receive Date: 20120920
  Receipt Date: 20121026
  Transmission Date: 20130627
  Serious: Yes (Other)
  Sender: FDA-Public Use
  Company Number: ES-AMGEN-ESPSP2012048449

PATIENT
  Age: 77 Year
  Sex: Female

DRUGS (1)
  1. PROLIA [Suspect]
     Indication: OSTEOPOROSIS
     Dosage: UNK
     Dates: start: 20120125

REACTIONS (11)
  - Brain injury [Unknown]
  - Gene mutation [Unknown]
  - Unresponsive to stimuli [Unknown]
  - Tension headache [Not Recovered/Not Resolved]
  - Sensory disturbance [Not Recovered/Not Resolved]
  - Anxiety [Unknown]
  - Nervousness [Unknown]
  - Headache [Unknown]
  - Tension [Unknown]
  - Paraesthesia [Unknown]
  - Staring [Unknown]
